FAERS Safety Report 8257690 (Version 3)
Quarter: 2013Q1

REPORT INFORMATION
  Report Type: Report from Study
  Country: GB (occurrence: GB)
  Receive Date: 20111121
  Receipt Date: 20130313
  Transmission Date: 20140127
  Serious: Yes (Death, Other)
  Sender: FDA-Public Use
  Company Number: GB-ABBOTT-11P-167-0874966-00

PATIENT
  Age: 83 Year
  Sex: Female

DRUGS (4)
  1. HUMIRA 40 MG/ 0.8 ML PRE-FILLED SYRINGE [Suspect]
     Indication: RHEUMATOID ARTHRITIS
     Route: 058
     Dates: start: 20031015
  2. METHOTREXATE [Concomitant]
     Indication: PRODUCT USED FOR UNKNOWN INDICATION
  3. CEFALEXIN [Concomitant]
     Indication: PROPHYLAXIS
  4. CEFALEXIN [Concomitant]
     Indication: INFECTION

REACTIONS (6)
  - Vascular dementia [Fatal]
  - Cognitive disorder [Unknown]
  - Cerebrovascular disorder [Unknown]
  - Cerebrovascular accident [Unknown]
  - Dysstasia [Unknown]
  - Cardiomegaly [Unknown]
